FAERS Safety Report 6223154-3 (Version None)
Quarter: 2009Q2

REPORT INFORMATION
  Report Type: 
  Country: None (occurrence: None)
  Receive Date: 20090611
  Receipt Date: 20090608
  Transmission Date: 20091009
  Serious: Yes (Death, Other)
  Sender: FDA-Public Use
  Company Number: PHHY2008GB32066

PATIENT
  Sex: Female

DRUGS (2)
  1. CLOZARIL [Suspect]
     Indication: SCHIZOPHRENIA
     Dosage: UNK
     Dates: start: 20070205
  2. SULPIRIDE [Concomitant]
     Dosage: 600 MG DAILY
     Route: 048

REACTIONS (7)
  - ANTIPSYCHOTIC DRUG LEVEL INCREASED [None]
  - DRUG TOXICITY [None]
  - HEPATIC STEATOSIS [None]
  - OVERDOSE [None]
  - PULMONARY CONGESTION [None]
  - SALIVARY HYPERSECRETION [None]
  - UPPER RESPIRATORY TRACT INFLAMMATION [None]
